FAERS Safety Report 5546639-1 (Version None)
Quarter: 2007Q4

REPORT INFORMATION
  Report Type: 
  Country: None (occurrence: None)
  Receive Date: 20071211
  Receipt Date: 20070214
  Transmission Date: 20080405
  Serious: No
  Sender: FDA-Public Use
  Company Number: US-AMGEN-KDL207922

PATIENT
  Sex: Male
  Weight: 121.7 kg

DRUGS (5)
  1. ENBREL [Suspect]
     Indication: PSORIATIC ARTHROPATHY
     Route: 058
     Dates: start: 20070111
  2. METHOTREXATE [Concomitant]
     Dates: start: 20040101
  3. DICLOFENAC [Concomitant]
  4. VITAMIN CAP [Concomitant]
  5. SUDAFED 12 HOUR [Concomitant]

REACTIONS (1)
  - HALO VISION [None]
